FAERS Safety Report 10679212 (Version 1)
Quarter: 2014Q4

REPORT INFORMATION
  Report Type: Spontaneous
  Country: US (occurrence: None)
  Receive Date: 20141224
  Receipt Date: 20141224
  Transmission Date: 20150529
  Serious: No
  Sender: FDA-Public Use
  Company Number: None

PATIENT
  Age: 81 Year
  Sex: Male
  Weight: 72.58 kg

DRUGS (1)
  1. PIRFENIDONE [Suspect]
     Active Substance: PIRFENIDONE
     Indication: PULMONARY FIBROSIS
     Dosage: 2 PILLS
     Route: 048
     Dates: start: 20141209, end: 20141223

REACTIONS (3)
  - Burning sensation [None]
  - Pain in extremity [None]
  - Skin burning sensation [None]

NARRATIVE: CASE EVENT DATE: 20141222
